FAERS Safety Report 6494998-8 (Version None)
Quarter: 2009Q4

REPORT INFORMATION
  Report Type: 
  Country: None (occurrence: None)
  Receive Date: 20091214
  Receipt Date: 20090428
  Transmission Date: 20100525
  Serious: No
  Sender: FDA-Public Use
  Company Number: US-BRISTOL-MYERS SQUIBB COMPANY-14593180

PATIENT
  Age: 18 Year
  Sex: Female

DRUGS (2)
  1. ABILIFY [Suspect]
     Dosage: PRESCRIBED DOSE WAS 2MG,QD,PO,30MG ON 25FEB09,REFILL ON 19MAR09,INCREASED TO 60MG,REDUCED TO 30MG.
     Route: 048
  2. STRATTERA [Concomitant]

REACTIONS (3)
  - FEELING ABNORMAL [None]
  - MEDICATION ERROR [None]
  - OVERDOSE [None]
